FAERS Safety Report 8011409 (Version 3)
Quarter: 2012Q4

REPORT INFORMATION
  Report Type: 
  Country: JP (occurrence: JP)
  Receive Date: 20110627
  Receipt Date: 20121008
  Transmission Date: 20130627
  Serious: Yes (Hospitalization, Other)
  Sender: FDA-Public Use
  Company Number: JP-B.I. PHARMACEUTICALS,INC./RIDGEFIELD-2011-DE-03620GD

PATIENT
  Age: 69 Year
  Sex: Male

DRUGS (4)
  1. PRAMIPEXOLE [Suspect]
     Indication: PARKINSON^S DISEASE
     Dosage: 1.5 mg
     Route: 048
  2. LEVODOPA-CARBIDOPA [Suspect]
     Indication: PARKINSON^S DISEASE
     Dosage: 300 mg
     Route: 048
  3. DOMPERIDONE [Suspect]
     Dosage: 15 mg
     Route: 048
  4. MOSAPRIDE CITRATE [Suspect]
     Dosage: 15 mg

REACTIONS (12)
  - Neuroleptic malignant syndrome [Recovered/Resolved]
  - Movement disorder [Unknown]
  - Subileus [Recovered/Resolved]
  - Constipation [Unknown]
  - Diarrhoea [Unknown]
  - Faecaloma [Recovered/Resolved]
  - Pyrexia [Recovered/Resolved]
  - Muscle rigidity [Recovered/Resolved]
  - Akinesia [Recovered/Resolved]
  - Hypernatraemia [Recovered/Resolved]
  - Dehydration [Recovered/Resolved]
  - Abdominal distension [Recovered/Resolved]
